FAERS Safety Report 10023393 (Version 10)
Quarter: 2015Q1

REPORT INFORMATION
  Report Type: Report from Study
  Country: CA (occurrence: CA)
  Receive Date: 20140320
  Receipt Date: 20150312
  Transmission Date: 20150720
  Serious: Yes (Other)
  Sender: FDA-Public Use
  Company Number: CA-ROCHE-1138609

PATIENT
  Sex: Female
  Weight: 54.4 kg

DRUGS (9)
  1. APO-CAL [Concomitant]
  2. PREDNISONE. [Concomitant]
     Active Substance: PREDNISONE
  3. CALCITRIOL. [Concomitant]
     Active Substance: CALCITRIOL
  4. TYLENOL [Concomitant]
     Active Substance: ACETAMINOPHEN
     Route: 048
     Dates: start: 20100713, end: 20100713
  5. SOLU-MEDROL [Concomitant]
     Active Substance: METHYLPREDNISOLONE SODIUM SUCCINATE
     Route: 042
     Dates: start: 20100713, end: 20100713
  6. RITUXAN [Suspect]
     Active Substance: RITUXIMAB
     Indication: RHEUMATOID ARTHRITIS
     Route: 042
     Dates: start: 20100713, end: 20100713
  7. EPREX [Concomitant]
     Active Substance: ERYTHROPOIETIN
  8. ACTEMRA [Suspect]
     Active Substance: TOCILIZUMAB
     Indication: RHEUMATOID ARTHRITIS
     Route: 042
     Dates: start: 20120827
  9. BENADRYL [Concomitant]
     Active Substance: DIPHENHYDRAMINE HYDROCHLORIDE
     Route: 048
     Dates: start: 20100713, end: 20100713

REACTIONS (12)
  - Localised infection [Unknown]
  - Arthritis [Unknown]
  - Hiatus hernia [Unknown]
  - Sepsis [Unknown]
  - Hypertension [Unknown]
  - Blood potassium increased [Unknown]
  - Urinary tract infection [Unknown]
  - Oropharyngeal pain [Unknown]
  - Skin discolouration [Unknown]
  - Joint swelling [Not Recovered/Not Resolved]
  - Hyperparathyroidism [Recovering/Resolving]
  - Arthralgia [Unknown]

NARRATIVE: CASE EVENT DATE: 2012
